FAERS Safety Report 9701343 (Version 1)
Quarter: 2013Q4

REPORT INFORMATION
  Report Type: Spontaneous
  Country: US (occurrence: None)
  Receive Date: 20131119
  Receipt Date: 20131119
  Transmission Date: 20140711
  Serious: Yes (Other)
  Sender: FDA-Public Use
  Company Number: 20130638

PATIENT
  Sex: Female

DRUGS (2)
  1. METHYLENE BLUE [Suspect]
     Indication: DIAGNOSTIC PROCEDURE
     Route: 042
  2. SRI [Suspect]
     Indication: PRODUCT USED FOR UNKNOWN INDICATION

REACTIONS (2)
  - Encephalopathy [None]
  - Off label use [None]
